FAERS Safety Report 16419681 (Version 2)
Quarter: 2020Q1

REPORT INFORMATION
  Report Type: Spontaneous
  Country: ES (occurrence: ES)
  Receive Date: 20190612
  Receipt Date: 20200207
  Transmission Date: 20200409
  Serious: Yes (Other)
  Sender: FDA-Public Use
  Company Number: ES-BAYER-2019-110402

PATIENT
  Age: 41 Year
  Sex: Female

DRUGS (1)
  1. MIRENA [Suspect]
     Active Substance: LEVONORGESTREL
     Indication: METRORRHAGIA
     Dosage: 20 ?G PER DAY, CONT
     Route: 015
     Dates: start: 20130514, end: 20191206

REACTIONS (4)
  - Nodular regenerative hyperplasia [Recovered/Resolved]
  - Hepatic fibrosis [Recovered/Resolved]
  - Periportal sinus dilatation [Recovered/Resolved]
  - Device use issue [None]

NARRATIVE: CASE EVENT DATE: 2019
